FAERS Safety Report 8769057 (Version 1)
Quarter: 2012Q4

REPORT INFORMATION
  Report Type: 
  Country: US (occurrence: US)
  Receive Date: 20120904
  Receipt Date: 20120904
  Transmission Date: 20130627
  Serious: Yes (Death)
  Sender: FDA-Public Use
  Company Number: US-CELGENEUS-163-21880-12083408

PATIENT
  Sex: Male

DRUGS (1)
  1. REVLIMID [Suspect]
     Indication: MALIGNANT NEOPLASM OF LIVER, PRIMARY
     Dosage: 18.75 Milligram
     Route: 048
     Dates: start: 20120511

REACTIONS (1)
  - Death [Fatal]
